FAERS Safety Report 11128505 (Version 2)
Quarter: 2015Q2

REPORT INFORMATION
  Report Type: Report from Study
  Country: CL (occurrence: CL)
  Receive Date: 20150521
  Receipt Date: 20150612
  Transmission Date: 20150821
  Serious: Yes (Hospitalization)
  Sender: FDA-Public Use
  Company Number: CL-SA-2015SA006623

PATIENT
  Age: 43 Year
  Sex: Female
  Weight: 52 kg

DRUGS (7)
  1. CALCIUM [Concomitant]
     Active Substance: CALCIUM
     Indication: HYPOTHYROIDISM
     Route: 048
     Dates: start: 2005
  2. LANTUS [Suspect]
     Active Substance: INSULIN GLARGINE
     Indication: TYPE 2 DIABETES MELLITUS
     Dosage: MORNING DOSE:30 UNIT(S)
     Route: 058
     Dates: start: 201411
  3. LANTUS [Suspect]
     Active Substance: INSULIN GLARGINE
     Indication: TYPE 2 DIABETES MELLITUS
     Route: 058
  4. LANTUS [Suspect]
     Active Substance: INSULIN GLARGINE
     Indication: TYPE 2 DIABETES MELLITUS
     Dosage: MORNING DOSE:30 UNIT(S)
     Route: 058
     Dates: start: 20150410, end: 20150417
  5. ISOPHANE INSULIN [Suspect]
     Active Substance: INSULIN NOS
     Indication: DIABETES MELLITUS
     Dosage: AFTER LUNCH
     Route: 058
  6. EUTIROX [Concomitant]
     Active Substance: LEVOTHYROXINE SODIUM
     Indication: HYPOTHYROIDISM
     Route: 048
     Dates: start: 2005
  7. APIDRA [Suspect]
     Active Substance: INSULIN GLULISINE
     Indication: TYPE 2 DIABETES MELLITUS
     Dosage: 151-200MG/DL:2U; 201-250 MG/DL: 4U;251-300 MG/DL: 6U; 301-350MG/DL: 8U; }351 MG/DL :10 U
     Route: 058
     Dates: start: 201411

REACTIONS (9)
  - Pain in jaw [Recovering/Resolving]
  - Hypoglycaemia [Recovering/Resolving]
  - Feeling hot [Recovering/Resolving]
  - Cold sweat [Unknown]
  - Injection site haemorrhage [Recovered/Resolved]
  - Tooth infection [Not Recovered/Not Resolved]
  - Headache [Recovering/Resolving]
  - Hyperglycaemia [Unknown]
  - Back pain [Recovering/Resolving]

NARRATIVE: CASE EVENT DATE: 20141117
